FAERS Safety Report 19174477 (Version 1)
Quarter: 2021Q2

REPORT INFORMATION
  Report Type: Report from Study
  Country: RU (occurrence: RU)
  Receive Date: 20210423
  Receipt Date: 20210423
  Transmission Date: 20210717
  Serious: Yes (Hospitalization, Other)
  Sender: FDA-Public Use
  Company Number: RU-TAKEDA-2021TUS024820

PATIENT
  Age: 57 Year
  Sex: Male
  Weight: 80 kg

DRUGS (3)
  1. VEDOLIZUMAB [Suspect]
     Active Substance: VEDOLIZUMAB
     Indication: COLITIS ULCERATIVE
     Dosage: 300 MILLIGRAM
     Route: 042
     Dates: start: 20190822, end: 20200906
  2. MESALAZINE [Concomitant]
     Active Substance: MESALAMINE
     Dosage: 4 GRAM
     Route: 048
     Dates: start: 201502
  3. MESALAZINE [Concomitant]
     Active Substance: MESALAMINE
     Dosage: 4 GRAM
     Route: 054
     Dates: start: 201502

REACTIONS (1)
  - Colitis ulcerative [Recovering/Resolving]

NARRATIVE: CASE EVENT DATE: 20201001
